FAERS Safety Report 11286485 (Version 1)
Quarter: 2015Q3

REPORT INFORMATION
  Report Type: Spontaneous
  Country: PR (occurrence: None)
  Receive Date: 20150720
  Receipt Date: 20150720
  Transmission Date: 20151125
  Serious: Yes (Other)
  Sender: FDA-Public Use
  Company Number: None

PATIENT
  Age: 35 Year
  Sex: Female
  Weight: 60.78 kg

DRUGS (1)
  1. KETOROLAC [Suspect]
     Active Substance: KETOROLAC\KETOROLAC TROMETHAMINE
     Indication: NECK PAIN
     Route: 030
     Dates: start: 20150102, end: 20150102

REACTIONS (3)
  - Injection site reaction [None]
  - Skin atrophy [None]
  - Injection site induration [None]

NARRATIVE: CASE EVENT DATE: 20150102
